FAERS Safety Report 10369676 (Version 1)
Quarter: 2014Q3

REPORT INFORMATION
  Report Type: Spontaneous
  Country: US (occurrence: US)
  Receive Date: 20140807
  Receipt Date: 20140807
  Transmission Date: 20150326
  Serious: No
  Sender: FDA-Public Use
  Company Number: US-AMGEN-USASP2014029630

PATIENT
  Age: 62 Year
  Sex: Male

DRUGS (1)
  1. NPLATE [Suspect]
     Active Substance: ROMIPLOSTIM
     Indication: IMMUNE THROMBOCYTOPENIC PURPURA
     Dosage: 85 MUG, QWK
     Route: 058
     Dates: start: 20140328

REACTIONS (3)
  - White blood cell count decreased [Unknown]
  - Granulocytes abnormal [Unknown]
  - Lymphocyte count abnormal [Unknown]

NARRATIVE: CASE EVENT DATE: 20140414
